FAERS Safety Report 9678182 (Version 1)
Quarter: 2013Q4

REPORT INFORMATION
  Report Type: Spontaneous
  Country: US (occurrence: None)
  Receive Date: 20131106
  Receipt Date: 20131106
  Transmission Date: 20140711
  Serious: Yes (Hospitalization)
  Sender: FDA-Public Use
  Company Number: UTC-039998

PATIENT
  Age: 58 Year
  Sex: Female
  Weight: 66.4 kg

DRUGS (3)
  1. REMODULIN ( 2.5 MILLIGRAM/MILLILITERS, INJECTION FOR INFUSION) ( TREPROSTINIL SODIUM) [Suspect]
     Indication: COR PULMONALE CHRONIC
     Dosage: 33.12 UG/KG ( 0.023 UG/KG, 1 IN 1 MIN), INTRAVENOUS DRIP
     Route: 041
     Dates: start: 20110119
  2. REVATIO ( SILDENAFIL CITRATE) ( UNKNOWN) [Concomitant]
  3. COUMADIN ( WARFARIN SODIUM) ( UNKNOWN) [Concomitant]

REACTIONS (7)
  - Palpitations [None]
  - Syncope [None]
  - Drug dose omission [None]
  - Ear discomfort [None]
  - Palpitations [None]
  - Balance disorder [None]
  - Wrong technique in drug usage process [None]
